FAERS Safety Report 6304267-4 (Version None)
Quarter: 2009Q3

REPORT INFORMATION
  Report Type: 
  Country: None (occurrence: None)
  Receive Date: 20090811
  Receipt Date: 20090806
  Transmission Date: 20100115
  Serious: Yes (Hospitalization)
  Sender: FDA-Public Use
  Company Number: AU-B.I. PHARMACEUTICALS,INC./RIDGEFIELD-2009-AU-00308AU

PATIENT
  Sex: Male

DRUGS (10)
  1. SPIRIVA [Suspect]
     Indication: ASTHMA
     Dates: end: 20090630
  2. DIAFORMIN [Concomitant]
     Indication: DIABETES MELLITUS
  3. DIAMICRON MR [Concomitant]
     Indication: DIABETES MELLITUS
  4. INSULIN [Concomitant]
     Indication: DIABETES MELLITUS
  5. KARVEZIDE [Concomitant]
     Indication: HYPERTENSION
  6. VASOCARDOL [Concomitant]
     Indication: HYPERTENSION
  7. LIPITOR [Concomitant]
     Indication: HYPERLIPIDAEMIA
  8. PLAVIX [Concomitant]
  9. ACETAMINOPHEN [Concomitant]
     Indication: OSTEOARTHRITIS
  10. PRODEINE FORTE [Concomitant]

REACTIONS (5)
  - HYPOKINESIA [None]
  - INCORRECT ROUTE OF DRUG ADMINISTRATION [None]
  - MALAISE [None]
  - NAUSEA [None]
  - PAIN IN EXTREMITY [None]
